FAERS Safety Report 5864440-6 (Version None)
Quarter: 2008Q3

REPORT INFORMATION
  Report Type: 
  Country: None (occurrence: None)
  Receive Date: 20080829
  Receipt Date: 20080819
  Transmission Date: 20090109
  Serious: Yes (Death, Life-Threatening, Hospitalization, Other)
  Sender: FDA-Public Use
  Company Number: JP-ELI_LILLY_AND_COMPANY-JP_030801524

PATIENT
  Sex: Male
  Weight: 63.4 kg

DRUGS (7)
  1. GEMZAR [Suspect]
     Indication: PANCREATIC CARCINOMA STAGE IV
     Dosage: 1776 MG, OTHER
     Route: 042
     Dates: start: 20030722, end: 20030729
  2. CISPLATIN [Concomitant]
     Indication: PANCREATIC CARCINOMA STAGE IV
     Dosage: 140 MG, OTHER
     Route: 042
     Dates: start: 20030722, end: 20030722
  3. URSOSAN [Concomitant]
     Indication: HEPATIC FUNCTION ABNORMAL
     Dosage: 50 MG, 3/D
     Route: 048
     Dates: start: 20030717, end: 20030805
  4. SULPERAZON [Concomitant]
     Indication: PYREXIA
     Dosage: 2000 MG, DAILY (1/D)
     Route: 042
     Dates: start: 20030722, end: 20030725
  5. NOVAMIN [Concomitant]
     Indication: PROPHYLAXIS OF NAUSEA AND VOMITING
     Dosage: 5 MG, DAILY (1/D)
     Route: 042
     Dates: start: 20030722, end: 20030729
  6. GRANISETRON HCL [Concomitant]
     Indication: PROPHYLAXIS OF NAUSEA AND VOMITING
     Dosage: UNK, UNKNOWN
  7. DEXAMETHASONE TAB [Concomitant]
     Indication: PROPHYLAXIS OF NAUSEA AND VOMITING
     Dosage: UNK, UNKNOWN

REACTIONS (11)
  - ANOREXIA [None]
  - FATIGUE [None]
  - FEBRILE NEUTROPENIA [None]
  - MALIGNANT NEOPLASM PROGRESSION [None]
  - OROPHARYNGEAL PAIN [None]
  - PANCYTOPENIA [None]
  - PRURITUS [None]
  - PYREXIA [None]
  - RASH [None]
  - STOMATITIS [None]
  - URTICARIA [None]
